FAERS Safety Report 7457929 (Version 5)
Quarter: 2014Q3

REPORT INFORMATION
  Report Type: Spontaneous
  Country: US (occurrence: US)
  Receive Date: 20100708
  Receipt Date: 20140915
  Transmission Date: 20150326
  Serious: Yes (Hospitalization, Other)
  Sender: FDA-Public Use
  Company Number: US-BAYER-201026666NA

PATIENT
  Age: 49 Year
  Sex: Female
  Weight: 79.82 kg

DRUGS (3)
  1. YASMIN [Suspect]
     Active Substance: DROSPIRENONE\ETHINYL ESTRADIOL
     Indication: PREMENSTRUAL SYNDROME
     Dosage: UNK UNK, QD
     Route: 048
     Dates: start: 20041101, end: 20050430
  2. YASMIN [Suspect]
     Active Substance: DROSPIRENONE\ETHINYL ESTRADIOL
     Indication: MENORRHAGIA
  3. WELLBUTRIN [Concomitant]
     Active Substance: BUPROPION HYDROCHLORIDE
     Dosage: 100 MG, QD

REACTIONS (15)
  - Cerebral infarction [Unknown]
  - Hypoaesthesia [Unknown]
  - Chest pain [Unknown]
  - Depression [None]
  - Headache [Unknown]
  - Vena cava thrombosis [Unknown]
  - Pulmonary embolism [Unknown]
  - Dyspnoea [Unknown]
  - Pain [Unknown]
  - Deep vein thrombosis [None]
  - Cerebrovascular accident [Unknown]
  - Hemiparesis [Unknown]
  - Eye pain [Unknown]
  - Injury [Unknown]
  - Emotional distress [None]

NARRATIVE: CASE EVENT DATE: 200412
